FAERS Safety Report 8408373-X (Version None)
Quarter: 2012Q2

REPORT INFORMATION
  Report Type: 
  Country: None (occurrence: None)
  Receive Date: 20120604
  Receipt Date: 20120523
  Transmission Date: 20120825
  Serious: Yes (Other)
  Sender: FDA-Public Use
  Company Number: US-UCBSA-058252

PATIENT
  Age: 52 Year
  Sex: Male

DRUGS (1)
  1. PEG-3350 [Suspect]
     Indication: LAXATIVE SUPPORTIVE CARE
     Dosage: 3 OUNCES
     Route: 048

REACTIONS (2)
  - HYPERSENSITIVITY [None]
  - DRUG HYPERSENSITIVITY [None]
